FAERS Safety Report 8301351-0 (Version None)
Quarter: 2012Q2

REPORT INFORMATION
  Report Type: 
  Country: None (occurrence: None)
  Receive Date: 20120420
  Receipt Date: 20120416
  Transmission Date: 20120825
  Serious: Yes (Hospitalization)
  Sender: FDA-Public Use
  Company Number: CA-ABBOTT-12P-028-0922955-00

PATIENT
  Sex: Male
  Weight: 64.8 kg

DRUGS (3)
  1. HUMIRA [Suspect]
     Indication: CROHN'S DISEASE
     Route: 058
     Dates: start: 20110224, end: 20110901
  2. HUMIRA [Suspect]
     Dates: start: 20111201
  3. HUMIRA [Suspect]
     Dates: start: 20110901, end: 20111201

REACTIONS (4)
  - DIARRHOEA [None]
  - DEHYDRATION [None]
  - URINE OUTPUT DECREASED [None]
  - SMALL INTESTINE ULCER [None]
